FAERS Safety Report 22076696 (Version 4)
Quarter: 2023Q2

REPORT INFORMATION
  Report Type: Report from Study
  Country: US (occurrence: US)
  Receive Date: 20230309
  Receipt Date: 20230421
  Transmission Date: 20230722
  Serious: Yes (Other)
  Sender: FDA-Public Use
  Company Number: US-BEH-2023156052

PATIENT
  Age: 74 Year
  Sex: Female

DRUGS (4)
  1. BERINERT [Suspect]
     Active Substance: HUMAN C1-ESTERASE INHIBITOR
     Indication: Hereditary angioedema
     Dosage: 4000 INTERNATIONAL UNIT, BIW
     Route: 058
     Dates: start: 20220415
  2. BERINERT [Suspect]
     Active Substance: HUMAN C1-ESTERASE INHIBITOR
     Indication: Prophylaxis
     Dosage: 4000 INTERNATIONAL UNIT, BIW
     Route: 058
     Dates: start: 20220331
  3. BERINERT [Suspect]
     Active Substance: HUMAN C1-ESTERASE INHIBITOR
     Indication: Hereditary angioedema
     Dosage: UNK
     Route: 065
     Dates: start: 20230331
  4. BERINERT [Suspect]
     Active Substance: HUMAN C1-ESTERASE INHIBITOR
     Indication: Hereditary angioedema

REACTIONS (8)
  - Hereditary angioedema [Unknown]
  - Hereditary angioedema [Unknown]
  - Device issue [Unknown]
  - Product preparation issue [Unknown]
  - Hereditary angioedema [Recovered/Resolved]
  - No adverse event [Unknown]
  - Off label use [Unknown]
  - Limb operation [Unknown]

NARRATIVE: CASE EVENT DATE: 20220101
